FAERS Safety Report 5032747-0 (Version None)
Quarter: 2006Q2

REPORT INFORMATION
  Report Type: 
  Country: None (occurrence: None)
  Receive Date: 20060515
  Receipt Date: 20060202
  Transmission Date: 20061013
  Serious: No
  Sender: FDA-Public Use
  Company Number: S06-USA-00381-01

PATIENT
  Age: 79 Year
  Sex: Male

DRUGS (7)
  1. NAMENDA [Suspect]
     Indication: MEMORY IMPAIRMENT
     Dosage: 5 MG QD PO
     Route: 048
     Dates: start: 20060127
  2. ARICEPT [Concomitant]
  3. SEROQUEL [Concomitant]
  4. ZOLOFT [Concomitant]
  5. THYROID MEDICATION (NOS) [Concomitant]
  6. VITAMINS [Concomitant]
  7. FINASTERIDE [Concomitant]

REACTIONS (1)
  - URTICARIA [None]
